FAERS Safety Report 4561638-4 (Version None)
Quarter: 2005Q1

REPORT INFORMATION
  Report Type: 
  Country: None (occurrence: None)
  Receive Date: 20050126
  Receipt Date: 20050120
  Transmission Date: 20050727
  Serious: Yes (Other)
  Sender: FDA-Public Use
  Company Number: GB-GLAXOSMITHKLINE-B0365192A

PATIENT
  Age: 59 Year
  Sex: Male
  Weight: 75 kg

DRUGS (2)
  1. FLIXONASE [Suspect]
     Indication: NASAL POLYPS
     Dosage: 6DROP PER DAY
     Dates: start: 20041223, end: 20050105
  2. CALCIPOTRIOL [Concomitant]
     Indication: PSORIASIS
     Route: 061
     Dates: start: 20040401

REACTIONS (3)
  - ANXIETY [None]
  - CLAUSTROPHOBIA [None]
  - PSYCHOMOTOR HYPERACTIVITY [None]
